FAERS Safety Report 18853166 (Version 4)
Quarter: 2022Q4

REPORT INFORMATION
  Report Type: Spontaneous
  Country: US (occurrence: US)
  Receive Date: 20210205
  Receipt Date: 20221020
  Transmission Date: 20230113
  Serious: No
  Sender: FDA-Public Use
  Company Number: US-PFIZER INC-2019399818

PATIENT
  Age: 70 Year
  Sex: Female

DRUGS (3)
  1. PREMARIN [Suspect]
     Active Substance: ESTROGENS, CONJUGATED
     Dosage: UNK
  2. PREMARIN [Suspect]
     Active Substance: ESTROGENS, CONJUGATED
     Dosage: 0.5 G, CYCLIC (ONCE DAILY CYCLICALLY 3 WEEKS ON AND 1 WEEK OFF)
     Route: 067
     Dates: start: 20220907
  3. PREMARIN [Suspect]
     Active Substance: ESTROGENS, CONJUGATED
     Dosage: 0.5 G, CYCLIC (ONCE DAILY CYCLICALLY 3 WEEKS ON AND 1 WEEK OFF)
     Route: 061
     Dates: start: 20220907

REACTIONS (4)
  - Pruritus [Unknown]
  - Insomnia [Unknown]
  - Product use issue [Unknown]
  - Off label use [Unknown]

NARRATIVE: CASE EVENT DATE: 20220907
